FAERS Safety Report 6072768-2 (Version None)
Quarter: 2009Q1

REPORT INFORMATION
  Report Type: 
  Country: None (occurrence: None)
  Receive Date: 20090210
  Receipt Date: 20090129
  Transmission Date: 20090719
  Serious: Yes (Other)
  Sender: FDA-Public Use
  Company Number: US-ELI_LILLY_AND_COMPANY-US200901005263

PATIENT
  Sex: Female

DRUGS (4)
  1. CYMBALTA [Suspect]
     Indication: CRYING
     Dosage: 20 MG, DAILY (1/D)
  2. CYMBALTA [Suspect]
     Dosage: 20 MG, QOD
  3. CYMBALTA [Suspect]
     Dosage: 20 MG, DAILY (1/D)
     Dates: start: 20080701, end: 20080701
  4. CYMBALTA [Suspect]
     Dosage: 20 MG, QOD
     Dates: start: 20080101

REACTIONS (5)
  - ABDOMINAL DISTENSION [None]
  - ASTHENIA [None]
  - LIMB OPERATION [None]
  - SOMNOLENCE [None]
  - WEIGHT INCREASED [None]
